FAERS Safety Report 14279437 (Version 1)
Quarter: 2017Q4

REPORT INFORMATION
  Report Type: Spontaneous
  Country: US (occurrence: US)
  Receive Date: 20171212
  Receipt Date: 20171212
  Transmission Date: 20180321
  Serious: No
  Sender: FDA-Public Use
  Company Number: US-PURDUE-USA-2017-0136328

PATIENT
  Sex: Female

DRUGS (2)
  1. HYDROMORPHONE TABLET (RHODES) [Suspect]
     Active Substance: HYDROMORPHONE
     Indication: SPINAL PAIN
     Dosage: 2 MG, HS
     Route: 048
     Dates: start: 20170103
  2. HYDROMORPHONE TABLET (RHODES) [Suspect]
     Active Substance: HYDROMORPHONE
     Dosage: 2 MG, PRN
     Route: 048
     Dates: start: 20170103

REACTIONS (1)
  - Drug ineffective [Recovered/Resolved]
